FAERS Safety Report 8581203-1 (Version None)
Quarter: 2012Q3

REPORT INFORMATION
  Report Type: 
  Country: None (occurrence: None)
  Receive Date: 20120809
  Receipt Date: 20120802
  Transmission Date: 20120928
  Serious: Yes (Other)
  Sender: FDA-Public Use
  Company Number: US-JNJFOC-20120711006

PATIENT
  Sex: Female

DRUGS (1)
  1. NICOTINE POLACRILEX [Suspect]
     Indication: PRODUCT USED FOR UNKNOWN INDICATION
     Dosage: SINCE 30 YEARS
     Route: 002

REACTIONS (3)
  - NICOTINE DEPENDENCE [None]
  - INTENTIONAL DRUG MISUSE [None]
  - DRUG ADMINISTRATION ERROR [None]
